FAERS Safety Report 11204822 (Version 3)
Quarter: 2015Q3

REPORT INFORMATION
  Report Type: Spontaneous
  Country: GB (occurrence: GB)
  Receive Date: 20150622
  Receipt Date: 20150812
  Transmission Date: 20151125
  Serious: Yes (Death, Other)
  Sender: FDA-Public Use
  Company Number: GB-ROCHE-1593518

PATIENT
  Age: 55 Year
  Sex: Female

DRUGS (3)
  1. ZELBORAF [Suspect]
     Active Substance: VEMURAFENIB
     Indication: METASTATIC MALIGNANT MELANOMA
     Route: 065
     Dates: start: 201309
  2. ZELBORAF [Suspect]
     Active Substance: VEMURAFENIB
     Dosage: ALTERNATE WEEKS
     Route: 065
     Dates: start: 201312
  3. ZELBORAF [Suspect]
     Active Substance: VEMURAFENIB
     Dosage: FOR 1 WEEK PER MONTH
     Route: 065
     Dates: start: 201502

REACTIONS (7)
  - Ascites [Unknown]
  - Blood bilirubin decreased [Unknown]
  - Alcoholic liver disease [Fatal]
  - Jaundice [Unknown]
  - Gastrointestinal haemorrhage [Unknown]
  - Blood bilirubin increased [Unknown]
  - Hypokalaemia [Unknown]

NARRATIVE: CASE EVENT DATE: 201310
